FAERS Safety Report 10766101 (Version 4)
Quarter: 2015Q2

REPORT INFORMATION
  Report Type: Spontaneous
  Country: US (occurrence: US)
  Receive Date: 20150205
  Receipt Date: 20150507
  Transmission Date: 20150821
  Serious: Yes (Death, Other)
  Sender: FDA-Public Use
  Company Number: US-PFIZER INC-2015045395

PATIENT
  Age: 88 Year
  Sex: Male
  Weight: 50 kg

DRUGS (1)
  1. ADVIL [Suspect]
     Active Substance: IBUPROFEN
     Indication: PAIN
     Dosage: 400 MG (TWO 200MG), UNK
     Route: 048

REACTIONS (3)
  - Regurgitation [Unknown]
  - Death [Fatal]
  - Foreign body [Unknown]

NARRATIVE: CASE EVENT DATE: 20150206
